FAERS Safety Report 12541498 (Version 1)
Quarter: 2016Q3

REPORT INFORMATION
  Report Type: Spontaneous
  Country: US (occurrence: US)
  Receive Date: 20160708
  Receipt Date: 20160708
  Transmission Date: 20161109
  Serious: Yes (Hospitalization)
  Sender: FDA-Public Use
  Company Number: US-PRINSTON PHARMACEUTICAL INC.-2016PRN00161

PATIENT
  Age: 19 Year
  Sex: Male

DRUGS (2)
  1. CITICOLINE [Suspect]
     Active Substance: CITICOLINE
     Indication: ATTENTION DEFICIT/HYPERACTIVITY DISORDER
     Dosage: 2 TO 3 TABLETS DAILY
     Route: 065
  2. BUPROPION HYDROCHLORIDE. [Suspect]
     Active Substance: BUPROPION HYDROCHLORIDE
     Route: 065

REACTIONS (3)
  - Psychotic disorder [Recovered/Resolved]
  - Intentional self-injury [Recovered/Resolved]
  - Drug interaction [Recovered/Resolved]
